FAERS Safety Report 20101835 (Version 1)
Quarter: 2021Q4

REPORT INFORMATION
  Report Type: Spontaneous
  Country: US (occurrence: US)
  Receive Date: 20211123
  Receipt Date: 20211123
  Transmission Date: 20220303
  Serious: Yes (Other)
  Sender: FDA-Public Use
  Company Number: US-GLAXOSMITHKLINE-US2021GSK240885

PATIENT
  Sex: Female

DRUGS (8)
  1. ZANTAC [Suspect]
     Active Substance: RANITIDINE HYDROCHLORIDE
     Indication: Dyspepsia
     Dosage: UNK,EVERY OTHER DAY, APPROX 4X/WEEK
     Route: 065
     Dates: start: 201301, end: 201809
  2. ZANTAC [Suspect]
     Active Substance: RANITIDINE HYDROCHLORIDE
     Indication: Dyspepsia
     Dosage: UNK,EVERY OTHER DAY, APPROX 4X/WEEK
     Route: 065
     Dates: start: 201301, end: 201809
  3. ZANTAC [Suspect]
     Active Substance: RANITIDINE HYDROCHLORIDE
     Indication: Dyspepsia
     Dosage: UNK,EVERY OTHER DAY, APPROX 4X/WEEK
     Route: 065
     Dates: start: 201301, end: 201809
  4. RANITIDINE [Suspect]
     Active Substance: RANITIDINE
     Indication: Dyspepsia
     Dosage: UNK,EVERY OTHER DAY, APPROX 4X/WEEK
     Route: 065
     Dates: start: 201301, end: 201809
  5. RANITIDINE [Suspect]
     Active Substance: RANITIDINE
     Dosage: UNK,EVERY OTHER DAY, APPROX 4X/WEEK
     Route: 065
     Dates: start: 201809, end: 201912
  6. RANITIDINE HYDROCHLORIDE [Suspect]
     Active Substance: RANITIDINE HYDROCHLORIDE
     Indication: Dyspepsia
     Dosage: UNK,EVERY OTHER DAY, APPROX 4X/WEEK
     Route: 065
     Dates: start: 201809, end: 201912
  7. RANITIDINE HYDROCHLORIDE [Suspect]
     Active Substance: RANITIDINE HYDROCHLORIDE
     Indication: Dyspepsia
     Dosage: UNK,EVERY OTHER DAY, APPROX 4X/WEEK
     Route: 065
     Dates: start: 201809, end: 201912
  8. RANITIDINE [Suspect]
     Active Substance: RANITIDINE
     Indication: Dyspepsia
     Dosage: UNK,EVERY OTHER DAY, APPROX 4X/WEEK
     Route: 065
     Dates: start: 201809, end: 201912

REACTIONS (1)
  - Colorectal cancer [Unknown]
